FAERS Safety Report 4663443-7 (Version None)
Quarter: 2005Q2

REPORT INFORMATION
  Report Type: 
  Country: None (occurrence: None)
  Receive Date: 20050513
  Receipt Date: 20050429
  Transmission Date: 20051028
  Serious: Yes (Hospitalization)
  Sender: FDA-Public Use
  Company Number: 05-0058PO

PATIENT
  Sex: Male

DRUGS (2)
  1. MEFENAMIC ACID [Suspect]
     Dosage: ONCE, DAILY, ORALLY
     Route: 048
     Dates: start: 20050330, end: 20050330
  2. ATACAND [Concomitant]

REACTIONS (12)
  - ARTHRALGIA [None]
  - BACK PAIN [None]
  - CHILLS [None]
  - CHROMATURIA [None]
  - ENCEPHALOPATHY [None]
  - HAEMODIALYSIS [None]
  - HAEMOLYTIC ANAEMIA [None]
  - HYPOTENSION [None]
  - HYPOVENTILATION [None]
  - JAUNDICE [None]
  - RENAL FAILURE ACUTE [None]
  - SOMNOLENCE [None]
